FAERS Safety Report 18095267 (Version 1)
Quarter: 2020Q3

REPORT INFORMATION
  Report Type: Report from Study
  Country: US (occurrence: US)
  Receive Date: 20200730
  Receipt Date: 20200730
  Transmission Date: 20201103
  Serious: Yes (Other)
  Sender: FDA-Public Use
  Company Number: US-MYLANLABS-2020M1068116

PATIENT
  Age: 14 Year
  Sex: Female

DRUGS (1)
  1. ISOTRETINOIN. [Suspect]
     Active Substance: ISOTRETINOIN
     Indication: NEUROBLASTOMA
     Dosage: DOSE: 160 MG/M2/DAY FOR 2 WEEKS A MONTH...
     Route: 065

REACTIONS (3)
  - Off label use [Unknown]
  - Epiphyseal injury [Unknown]
  - Growth failure [Unknown]
